FAERS Safety Report 7806358-5 (Version None)
Quarter: 2011Q4

REPORT INFORMATION
  Report Type: 
  Country: None (occurrence: None)
  Receive Date: 20111011
  Receipt Date: 20110928
  Transmission Date: 20120403
  Serious: Yes (Death, Life-Threatening, Other)
  Sender: FDA-Public Use
  Company Number: JP-ELI_LILLY_AND_COMPANY-JP201108002183

PATIENT
  Sex: Male
  Weight: 38 kg

DRUGS (38)
  1. NORVASC [Concomitant]
     Dosage: 5 MG, UNK
     Route: 048
     Dates: end: 20100412
  2. AKINETON [Concomitant]
     Dosage: 2 MG, QD
     Route: 048
     Dates: start: 20090120, end: 20091109
  3. ZOPICLON [Concomitant]
     Dosage: 7.5 MG, QD
     Route: 048
     Dates: start: 20090120, end: 20100830
  4. FLUNITRAZEPAM [Concomitant]
     Dosage: 1 MG, UNK
     Route: 048
     Dates: start: 20100402, end: 20100524
  5. RABEPRAZOLE SODIUM [Concomitant]
     Dosage: 20 MG, UNK
     Route: 048
     Dates: start: 20100410, end: 20101002
  6. SULPRID [Concomitant]
     Indication: DECREASED APPETITE
     Dosage: 25 MG, QD
     Route: 048
     Dates: start: 20110623, end: 20110828
  7. ZYPREXA [Suspect]
     Dosage: 5 MG, QD
     Route: 048
     Dates: start: 20090120, end: 20100823
  8. ZYPREXA [Suspect]
     Dosage: 10 MG, QD
     Route: 048
     Dates: start: 20100824, end: 20100920
  9. ALPRAZOLAM [Concomitant]
     Dosage: 0.4 MG, UNK
     Route: 048
     Dates: start: 20100405, end: 20100524
  10. HIRNAMIN [Concomitant]
     Dosage: 5 MG, UNK
     Route: 048
     Dates: start: 20100831, end: 20100920
  11. TRIAZOLAM [Concomitant]
     Dosage: 0.125 MG, UNK
     Route: 048
     Dates: start: 20100828, end: 20100907
  12. ZYPREXA [Suspect]
     Indication: SCHIZOPHRENIA
     Dosage: 0.4 G, QD
     Route: 048
     Dates: end: 20090119
  13. MAGNESIUM OXIDE [Concomitant]
     Dosage: 1.5 G, UNK
     Route: 048
     Dates: end: 20101005
  14. AKINETON [Concomitant]
     Dosage: 1 MG, UNK
     Route: 048
     Dates: start: 20100309, end: 20100920
  15. AMYL NITRITE [Concomitant]
     Dosage: 2.5 G, TID
     Route: 048
     Dates: end: 20101005
  16. PANTOSIN [Concomitant]
     Dosage: 0.4 G, UNK
     Route: 048
     Dates: end: 20101005
  17. FLUNITRAZEPAM [Concomitant]
     Dosage: 1 MG, QD
     Route: 048
     Dates: start: 20100828, end: 20100907
  18. DESYREL [Concomitant]
     Dosage: 25 MG, UNK
     Route: 048
     Dates: start: 20100720, end: 20100823
  19. ZOLPIDEM [Concomitant]
     Dosage: 5 MG, QD
     Route: 048
     Dates: start: 20100930
  20. TRIAZOLAM [Concomitant]
     Dosage: 0.125 MG, QD
     Route: 048
     Dates: start: 20100929, end: 20110616
  21. ALLOID G [Concomitant]
     Dosage: 15 ML, TID
     Route: 048
     Dates: start: 20101003, end: 20101122
  22. TASMOLIN [Concomitant]
     Dosage: 0.2 G, QD
     Route: 048
     Dates: end: 20090119
  23. MEDIPEACE [Concomitant]
     Dosage: 1 MG, QD
     Route: 048
     Dates: end: 20090119
  24. ZOLPIDEM [Concomitant]
     Dosage: 5 MG, UNK
     Route: 048
     Dates: start: 20100402, end: 20100524
  25. GAMOFA [Concomitant]
     Dosage: 10 MG, UNK
     Route: 048
     Dates: end: 20080331
  26. FERROUS CITRATE [Concomitant]
     Dosage: 50 MG, UNK
     Route: 048
     Dates: end: 20101005
  27. OMEPRAZOLE [Concomitant]
     Dosage: 10 MG, QD
     Route: 048
     Dates: start: 20101123, end: 20110317
  28. ETIZOLAM [Concomitant]
     Dosage: 1 MG, UNK
     Route: 048
     Dates: start: 20090120, end: 20101004
  29. FLUNITRAZEPAM [Concomitant]
     Dosage: 1 MG, QD
     Route: 048
     Dates: start: 20100929, end: 20110616
  30. RABEPRAZOLE SODIUM [Concomitant]
     Dosage: 20 MG, QD
     Route: 048
     Dates: start: 20110318
  31. TETRAMIDE [Concomitant]
     Dosage: 10 MG, UNK
     Route: 048
     Dates: start: 20100824
  32. ZOLOFT [Concomitant]
     Dosage: 25 MG, QD
     Route: 048
     Dates: start: 20101201, end: 20110117
  33. ZYPREXA [Suspect]
     Dosage: 5 MG, QD
     Route: 048
     Dates: start: 20100928, end: 20110730
  34. AMOBAN [Concomitant]
     Dosage: 7.5 MG, QD
     Route: 048
     Dates: end: 20090119
  35. FERROUS CITRATE [Concomitant]
     Dosage: 100 MG, QD
     Route: 048
     Dates: start: 20101006
  36. OMEPRAZOLE [Concomitant]
     Dosage: 10 MG, QD
     Route: 048
     Dates: start: 20080411, end: 20100411
  37. AKINETON [Concomitant]
     Dosage: 1 MG, BID
     Route: 048
     Dates: start: 20091110, end: 20100308
  38. MAGNESIUM HYDROXIDE TAB [Concomitant]
     Dosage: 1 DF, BID
     Route: 048
     Dates: start: 20101003, end: 20101122

REACTIONS (3)
  - SEPTIC SHOCK [None]
  - HYPOGLYCAEMIA [None]
  - CONVULSION [None]
